FAERS Safety Report 9681120 (Version 1)
Quarter: 2013Q4

REPORT INFORMATION
  Report Type: Spontaneous
  Country: GB (occurrence: GB)
  Receive Date: 20131111
  Receipt Date: 20131111
  Transmission Date: 20140711
  Serious: Yes (Life-Threatening, Hospitalization, Other)
  Sender: FDA-Public Use
  Company Number: GB-NOVOPROD-391457

PATIENT
  Age: 79 Year
  Sex: Male

DRUGS (1)
  1. NOVOMIX 30 PENFILL [Suspect]
     Indication: DIABETES MELLITUS
     Dosage: UNK

REACTIONS (9)
  - Coma [Unknown]
  - Hepatic failure [Unknown]
  - Myocardial infarction [Unknown]
  - Myocardial infarction [Unknown]
  - Hallucination [Unknown]
  - Nightmare [Unknown]
  - Mental disorder [Unknown]
  - Blood glucose increased [Unknown]
  - Blood glucose decreased [Unknown]
